FAERS Safety Report 7424433-4 (Version None)
Quarter: 2011Q2

REPORT INFORMATION
  Report Type: 
  Country: None (occurrence: None)
  Receive Date: 20110419
  Receipt Date: 20101227
  Transmission Date: 20111010
  Serious: No
  Sender: FDA-Public Use
  Company Number: US-ABBOTT-10P-163-0694478-00

PATIENT
  Sex: Female
  Weight: 66.738 kg

DRUGS (1)
  1. ZEMPLAR [Suspect]
     Indication: PRODUCT USED FOR UNKNOWN INDICATION
     Dosage: GIVEN DURING DIALYSIS ON MON, WEN, FRI

REACTIONS (1)
  - DRUG PRESCRIBING ERROR [None]
